FAERS Safety Report 9084029 (Version 2)
Quarter: 2013Q2

REPORT INFORMATION
  Report Type: Spontaneous
  Country: JP (occurrence: JP)
  Receive Date: 20130130
  Receipt Date: 20130408
  Transmission Date: 20140414
  Serious: Yes (Other)
  Sender: FDA-Public Use
  Company Number: JP-PFIZER INC-2013035479

PATIENT
  Age: 96 Year
  Sex: Male
  Weight: 51 kg

DRUGS (3)
  1. LYRICA [Suspect]
     Dosage: UNK
     Route: 048
  2. LYRICA [Suspect]
     Dosage: UNK
     Route: 048
     Dates: start: 201212
  3. VOLTAREN [Suspect]
     Indication: BACK PAIN
     Dosage: UNK
     Route: 062
     Dates: start: 20070322

REACTIONS (3)
  - Vision blurred [Recovered/Resolved]
  - Eye disorder [Recovered/Resolved]
  - Visual field defect [Unknown]
